FAERS Safety Report 9788437 (Version 2)
Quarter: 2014Q1

REPORT INFORMATION
  Report Type: Spontaneous
  Country: US (occurrence: US)
  Receive Date: 20131230
  Receipt Date: 20140103
  Transmission Date: 20141002
  Serious: Yes (Death, Other)
  Sender: FDA-Public Use
  Company Number: US-PFIZER INC-2013368342

PATIENT
  Age: 69 Year
  Sex: Male

DRUGS (2)
  1. REVATIO [Suspect]
     Indication: PULMONARY HYPERTENSION
     Dosage: 20 MG, UNK
     Dates: start: 20100503
  2. REVATIO [Suspect]
     Dosage: 40 MG, 3X/DAY
     Dates: start: 20100514

REACTIONS (2)
  - Cardiac failure [Fatal]
  - Respiratory failure [Fatal]
